FAERS Safety Report 13334847 (Version 2)
Quarter: 2017Q1

REPORT INFORMATION
  Report Type: Report from Study
  Country: CA (occurrence: CA)
  Receive Date: 20170314
  Receipt Date: 20170316
  Transmission Date: 20170428
  Serious: Yes (Other)
  Sender: FDA-Public Use
  Company Number: PHHY2013CA133690

PATIENT
  Age: 36 Year
  Sex: Male

DRUGS (4)
  1. SANDOSTATIN LAR DEPOT [Suspect]
     Active Substance: OCTREOTIDE ACETATE
     Indication: PARAGANGLION NEOPLASM
     Dosage: 30 MG, QMO
     Route: 030
     Dates: start: 20061002
  2. FLONASE [Concomitant]
     Active Substance: FLUTICASONE PROPIONATE
     Indication: PRODUCT USED FOR UNKNOWN INDICATION
     Dosage: UNK
     Route: 065
     Dates: start: 201612
  3. PALAFER [Concomitant]
     Active Substance: FERROUS FUMARATE
     Indication: PRODUCT USED FOR UNKNOWN INDICATION
     Dosage: UNK
     Route: 065
     Dates: start: 201612
  4. ELTROXIN [Concomitant]
     Active Substance: LEVOTHYROXINE
     Indication: HYPOTHYROIDISM
     Dosage: 0.25 MG, QD
     Route: 065
     Dates: start: 201612

REACTIONS (8)
  - Injection site pain [Unknown]
  - Gastric ulcer [Recovering/Resolving]
  - Blood pressure systolic increased [Unknown]
  - Back pain [Unknown]
  - Asthenia [Unknown]
  - Needle issue [Unknown]
  - Lymph node pain [Unknown]
  - Lymphadenopathy [Unknown]

NARRATIVE: CASE EVENT DATE: 20131031
